FAERS Safety Report 7749378-1 (Version None)
Quarter: 2011Q3

REPORT INFORMATION
  Report Type: 
  Country: None (occurrence: None)
  Receive Date: 20110909
  Receipt Date: 20110831
  Transmission Date: 20111222
  Serious: Yes (Life-Threatening, Hospitalization)
  Sender: FDA-Public Use
  Company Number: 2011MA012919

PATIENT
  Age: 59 Year
  Sex: Female
  Weight: 58.5 kg

DRUGS (6)
  1. NICOTINE [Concomitant]
  2. CLOZAPINE [Suspect]
     Dosage: PO
     Route: 048
     Dates: start: 20110610, end: 20110809
  3. RANITIDINE [Suspect]
     Indication: DYSPEPSIA
     Dosage: 300 MG;QD;PO
     Route: 048
     Dates: start: 20110201
  4. CLOTRIMAZOLE [Concomitant]
  5. ALBUTEROL [Concomitant]
  6. SYMBICORT [Concomitant]

REACTIONS (6)
  - FUNGAL INFECTION [None]
  - LEUKOPENIA [None]
  - PNEUMONIA [None]
  - BLOOD POTASSIUM DECREASED [None]
  - AGRANULOCYTOSIS [None]
  - LOWER RESPIRATORY TRACT INFECTION [None]
